FAERS Safety Report 10346052 (Version 1)
Quarter: 2014Q3

REPORT INFORMATION
  Report Type: Spontaneous
  Country: AT (occurrence: AT)
  Receive Date: 20140728
  Receipt Date: 20140728
  Transmission Date: 20150326
  Serious: Yes (Other)
  Sender: FDA-Public Use
  Company Number: AT-MUNDIPHARMA DS AND PHARMACOVIGILANCE-DEU-2014-0014983

PATIENT
  Age: 46 Year
  Sex: Male

DRUGS (2)
  1. SUBSTITOL RETARD KAPSELN [Suspect]
     Active Substance: MORPHINE SULFATE
     Indication: PRODUCT USED FOR UNKNOWN INDICATION
  2. COCAINE [Suspect]
     Active Substance: COCAINE
     Indication: PRODUCT USED FOR UNKNOWN INDICATION
     Dosage: UNK

REACTIONS (2)
  - Drug abuse [Unknown]
  - Homicide [Unknown]

NARRATIVE: CASE EVENT DATE: 20140104
